FAERS Safety Report 9823641 (Version 1)
Quarter: 2014Q1

REPORT INFORMATION
  Report Type: Spontaneous
  Country: US (occurrence: US)
  Receive Date: 20140116
  Receipt Date: 20140116
  Transmission Date: 20141002
  Serious: No
  Sender: FDA-Public Use
  Company Number: US-GILEAD-2011-0039258

PATIENT
  Age: 64 Year
  Sex: Female

DRUGS (2)
  1. LETAIRIS [Suspect]
     Indication: PRODUCT USED FOR UNKNOWN INDICATION
     Route: 048
     Dates: start: 201103, end: 20110507
  2. LETAIRIS [Suspect]
     Route: 048
     Dates: start: 201103, end: 201103

REACTIONS (4)
  - Dry mouth [Recovered/Resolved]
  - Nasal dryness [Recovered/Resolved]
  - Sinus headache [Recovered/Resolved]
  - Dyspnoea [Recovered/Resolved]
